FAERS Safety Report 7529266-6 (Version None)
Quarter: 2011Q2

REPORT INFORMATION
  Report Type: 
  Country: None (occurrence: None)
  Receive Date: 20110607
  Receipt Date: 20110531
  Transmission Date: 20111010
  Serious: Yes (Hospitalization)
  Sender: FDA-Public Use
  Company Number: CR-ROCHE-779960

PATIENT
  Sex: Female

DRUGS (2)
  1. CAPECITABINE [Suspect]
     Indication: BREAST CANCER
     Dosage: DOSE, FREQ: UNKNOWN. FORM: NOT REPORTED.
     Route: 048
     Dates: start: 20110513
  2. TRASTUZUMAB [Suspect]
     Indication: BREAST CANCER
     Dosage: DOSE, FREQ: UNKNOWN. FORM: NOT REPORTED.
     Route: 042
     Dates: start: 20110520

REACTIONS (4)
  - BLISTER [None]
  - NAUSEA [None]
  - ENTERITIS [None]
  - DISCOMFORT [None]
